FAERS Safety Report 8539855-8 (Version None)
Quarter: 2012Q2

REPORT INFORMATION
  Report Type: 
  Country: None (occurrence: None)
  Receive Date: 20120412
  Receipt Date: 20090611
  Transmission Date: 20120825
  Serious: Yes (Other)
  Sender: FDA-Public Use
  Company Number: PHEH2009US06075

PATIENT
  Age: 31 Year
  Sex: Male

DRUGS (3)
  1. CLOZARIL [Suspect]
     Indication: SCHIZOPHRENIA
     Dosage: 650 MG DAILY, ORAL ; 700 MG DAILY, ORAL
     Route: 048
     Dates: start: 20090604
  2. CLOZARIL [Suspect]
     Indication: SCHIZOPHRENIA
     Dosage: 650 MG DAILY, ORAL ; 700 MG DAILY, ORAL
     Route: 048
     Dates: start: 20030101
  3. ZOCOR [Concomitant]

REACTIONS (1)
  - WHITE BLOOD CELL COUNT DECREASED [None]
